FAERS Safety Report 6649141-9 (Version None)
Quarter: 2010Q1

REPORT INFORMATION
  Report Type: 
  Country: None (occurrence: None)
  Receive Date: 20100324
  Receipt Date: 20100316
  Transmission Date: 20100710
  Serious: Yes (Hospitalization)
  Sender: FDA-Public Use
  Company Number: A0789808A

PATIENT
  Age: 45 Year
  Sex: Female
  Weight: 93.9 kg

DRUGS (1)
  1. AVANDIA [Suspect]
     Dosage: 8MG PER DAY
     Route: 048
     Dates: start: 20041201, end: 20051101

REACTIONS (6)
  - BRADYCARDIA [None]
  - CORONARY ARTERY DISEASE [None]
  - CORONARY ARTERY THROMBOSIS [None]
  - HYPOTENSION [None]
  - MYOCARDIAL INFARCTION [None]
  - MYOCARDIAL ISCHAEMIA [None]
